FAERS Safety Report 6522524-3 (Version None)
Quarter: 2009Q4

REPORT INFORMATION
  Report Type: 
  Country: None (occurrence: None)
  Receive Date: 20091229
  Receipt Date: 20091229
  Transmission Date: 20100525
  Serious: No
  Sender: FDA-Public Use
  Company Number: None

PATIENT
  Age: 60 Year
  Sex: Female
  Weight: 63.5036 kg

DRUGS (2)
  1. LEVAQUIN [Suspect]
     Indication: KIDNEY INFECTION
     Dosage: 500 MG 1X/DAY PO
     Route: 048
     Dates: start: 20091203, end: 20091207
  2. LEVAQUIN [Suspect]
     Indication: NEPHROLITHIASIS
     Dosage: 500 MG 1X/DAY PO
     Route: 048
     Dates: start: 20091203, end: 20091207

REACTIONS (2)
  - DIARRHOEA [None]
  - PAIN IN EXTREMITY [None]
